FAERS Safety Report 6561536-0 (Version None)
Quarter: 2010Q1

REPORT INFORMATION
  Report Type: 
  Country: None (occurrence: None)
  Receive Date: 20100130
  Receipt Date: 20091021
  Transmission Date: 20100710
  Serious: No
  Sender: FDA-Public Use
  Company Number: US-ABBOTT-09P-163-0604570-00

PATIENT
  Sex: Female

DRUGS (2)
  1. HUMIRA [Suspect]
     Indication: DRUG USE FOR UNKNOWN INDICATION
     Dosage: PATIENT NOT ON DRUG,RECEIVED ONACCIDENT
  2. HUMIRA [Suspect]
     Dosage: PEN
     Dates: start: 20090101

REACTIONS (2)
  - INJURY ASSOCIATED WITH DEVICE [None]
  - WRONG DRUG ADMINISTERED [None]
